FAERS Safety Report 7809273-6 (Version None)
Quarter: 2011Q4

REPORT INFORMATION
  Report Type: 
  Country: None (occurrence: None)
  Receive Date: 20111006
  Receipt Date: 20110928
  Transmission Date: 20120403
  Serious: Yes (Hospitalization)
  Sender: FDA-Public Use
  Company Number: PHHY2011CH86240

PATIENT
  Age: 80 Year
  Sex: Male

DRUGS (3)
  1. SINTROM [Concomitant]
     Indication: ATRIAL FIBRILLATION
  2. ATENOLOL AND CHLORTHALIDONE [Suspect]
     Indication: ESSENTIAL HYPERTENSION
     Dosage: 100 MG, QD
     Route: 048
     Dates: end: 20091101
  3. METFORMIN HCL [Suspect]
     Indication: TYPE 2 DIABETES MELLITUS
     Dosage: 500 MG, QD
     Route: 048
     Dates: end: 20091101

REACTIONS (5)
  - TOXIC SKIN ERUPTION [None]
  - RASH MACULO-PAPULAR [None]
  - SKIN LESION [None]
  - PRURIGO [None]
  - DERMATITIS [None]
